FAERS Safety Report 10157950 (Version 1)
Quarter: 2014Q2

REPORT INFORMATION
  Report Type: Spontaneous
  Country: US (occurrence: US)
  Receive Date: 20140507
  Receipt Date: 20140507
  Transmission Date: 20141212
  Serious: Yes (Other)
  Sender: FDA-Public Use
  Company Number: US-TEVA-476969USA

PATIENT
  Age: 25 Year
  Sex: Female
  Weight: 59.02 kg

DRUGS (4)
  1. NUVIGIL [Suspect]
     Indication: FATIGUE
     Dates: start: 20140412
  2. BACLOFEN [Concomitant]
     Indication: URINARY RETENTION
  3. SPRINTEC GENERIC [Concomitant]
     Indication: CONTRACEPTION
  4. VITAMINS [Concomitant]
     Indication: SUPPLEMENTATION THERAPY

REACTIONS (6)
  - Urinary retention [Not Recovered/Not Resolved]
  - Urinary retention [Not Recovered/Not Resolved]
  - Bladder catheterisation [Not Recovered/Not Resolved]
  - Anxiety [Not Recovered/Not Resolved]
  - Insomnia [Recovered/Resolved]
  - Product used for unknown indication [Unknown]
